FAERS Safety Report 21672469 (Version 1)
Quarter: 2022Q4

REPORT INFORMATION
  Report Type: Spontaneous
  Country: DK (occurrence: DK)
  Receive Date: 20221202
  Receipt Date: 20221202
  Transmission Date: 20230113
  Serious: Yes (Life-Threatening, Hospitalization, Disabling, Other)
  Sender: FDA-Public Use
  Company Number: DK-MACLEODS PHARMACEUTICALS US LTD-MAC2022038401

PATIENT

DRUGS (7)
  1. OLANZAPINE [Suspect]
     Active Substance: OLANZAPINE
     Indication: Abnormal behaviour
     Dosage: 12.5 MILLIGRAM, QD
     Route: 065
  2. OLANZAPINE [Suspect]
     Active Substance: OLANZAPINE
     Indication: Insomnia
  3. HALOPERIDOL [Suspect]
     Active Substance: HALOPERIDOL
     Indication: Abnormal behaviour
     Dosage: 10 MILLIGRAM, QD
     Route: 065
  4. HALOPERIDOL [Suspect]
     Active Substance: HALOPERIDOL
     Indication: Aggression
  5. RISPERIDONE [Suspect]
     Active Substance: RISPERIDONE
     Indication: Abnormal behaviour
     Dosage: 2 MILLIGRAM, QD
     Route: 065
  6. RISPERIDONE [Suspect]
     Active Substance: RISPERIDONE
     Indication: Insomnia
  7. RISPERIDONE [Suspect]
     Active Substance: RISPERIDONE
     Indication: Condition aggravated

REACTIONS (4)
  - Gait inability [Recovering/Resolving]
  - Neuroleptic malignant syndrome [Recovering/Resolving]
  - Urinary retention [Recovering/Resolving]
  - Jaundice [Unknown]
